FAERS Safety Report 18595383 (Version 1)
Quarter: 2020Q4

REPORT INFORMATION
  Report Type: Spontaneous
  Country: FR (occurrence: FR)
  Receive Date: 20201209
  Receipt Date: 20201209
  Transmission Date: 20210114
  Serious: Yes (Life-Threatening, Hospitalization)
  Sender: FDA-Public Use
  Company Number: FR-TEVA-2020-FR-1856482

PATIENT
  Age: 54 Year
  Sex: Male
  Weight: 78 kg

DRUGS (2)
  1. VERAPAMIL TEVA L.P. 120 MG, GELULE A LIBERATION PROLONGEE [Suspect]
     Active Substance: VERAPAMIL HYDROCHLORIDE
     Indication: TOOTHACHE
     Dosage: 6 DOSAGE FORMS
     Route: 048
     Dates: start: 20201103
  2. DOLIPRANE [Concomitant]
     Active Substance: ACETAMINOPHEN
     Dosage: NOT ADMINISTERED
     Dates: start: 20201103

REACTIONS (3)
  - Cardiogenic shock [Recovered/Resolved]
  - Medication error [Recovered/Resolved]
  - Wrong product administered [Recovered/Resolved]

NARRATIVE: CASE EVENT DATE: 20201103
